FAERS Safety Report 10727668 (Version 4)
Quarter: 2015Q3

REPORT INFORMATION
  Report Type: Report from Study
  Country: AR (occurrence: AR)
  Receive Date: 20150121
  Receipt Date: 20150727
  Transmission Date: 20151125
  Serious: Yes (Hospitalization, Other)
  Sender: FDA-Public Use
  Company Number: PHHY2015AR007565

PATIENT
  Age: 81 Year
  Sex: Female

DRUGS (4)
  1. OTRIVINA [Suspect]
     Active Substance: XYLOMETAZOLINE
     Indication: NASAL CONGESTION
     Dosage: QD
     Route: 065
  2. EXFORGE [Suspect]
     Active Substance: AMLODIPINE BESYLATE\VALSARTAN
     Dosage: 0.5 DF, QD
     Route: 048
  3. EXFORGE [Suspect]
     Active Substance: AMLODIPINE BESYLATE\VALSARTAN
     Indication: HYPERTENSION
     Dosage: 1 DF, QD
     Route: 048
  4. ACLASTA [Suspect]
     Active Substance: ZOLEDRONIC ACID
     Indication: OSTEOPOROSIS
     Dosage: ONE TIME PER YEAR
     Route: 042
     Dates: start: 2011

REACTIONS (10)
  - Osteoporosis [Recovering/Resolving]
  - Bronchitis [Not Recovered/Not Resolved]
  - Gait disturbance [Recovering/Resolving]
  - Fatigue [Recovering/Resolving]
  - Vertigo [Recovering/Resolving]
  - Pain [Recovering/Resolving]
  - Pelvic fracture [Recovering/Resolving]
  - VIIth nerve paralysis [Not Recovered/Not Resolved]
  - Fall [Recovering/Resolving]
  - Condition aggravated [Recovering/Resolving]

NARRATIVE: CASE EVENT DATE: 20140113
